FAERS Safety Report 8314436-X (Version None)
Quarter: 2012Q2

REPORT INFORMATION
  Report Type: 
  Country: None (occurrence: None)
  Receive Date: 20120426
  Receipt Date: 20120424
  Transmission Date: 20120825
  Serious: Yes (Other)
  Sender: FDA-Public Use
  Company Number: US-ROCHE-1062662

PATIENT
  Sex: Female

DRUGS (2)
  1. ACCUTANE [Suspect]
     Dates: start: 20000914, end: 20010127
  2. ACCUTANE [Suspect]
     Indication: PRODUCT USED FOR UNKNOWN INDICATION
     Dates: start: 19980501, end: 19980915

REACTIONS (1)
  - INJURY [None]
